FAERS Safety Report 11182841 (Version 2)
Quarter: 2015Q2

REPORT INFORMATION
  Report Type: Spontaneous
  Country: FR (occurrence: FR)
  Receive Date: 20150611
  Receipt Date: 20150612
  Transmission Date: 20150821
  Serious: Yes (Hospitalization, Other)
  Sender: FDA-Public Use
  Company Number: FR-ABBVIE-15P-056-1407838-00

PATIENT
  Age: 51 Year
  Sex: Male

DRUGS (6)
  1. REYATAZ [Suspect]
     Active Substance: ATAZANAVIR SULFATE
     Indication: HIV INFECTION
     Route: 048
     Dates: start: 20140101
  2. PROPANOL [Concomitant]
     Active Substance: PROPRANOLOL HYDROCHLORIDE
     Indication: PRODUCT USED FOR UNKNOWN INDICATION
     Route: 048
  3. HARVONI [Suspect]
     Active Substance: LEDIPASVIR\SOFOSBUVIR
     Indication: HIV INFECTION
     Dosage: 900/400 MG
     Route: 048
     Dates: start: 20150430
  4. TRUVADA [Suspect]
     Active Substance: EMTRICITABINE\TENOFOVIR DISOPROXIL FUMARATE
     Indication: HIV INFECTION
     Dosage: 200MG/245MG
     Route: 048
     Dates: start: 20140101
  5. NORVIR [Suspect]
     Active Substance: RITONAVIR
     Indication: HIV INFECTION
     Route: 048
     Dates: start: 20140101
  6. SPIRONOLACTONE. [Concomitant]
     Active Substance: SPIRONOLACTONE
     Indication: PRODUCT USED FOR UNKNOWN INDICATION
     Route: 048

REACTIONS (6)
  - Pulmonary embolism [Unknown]
  - Asthenia [Unknown]
  - Chest pain [Unknown]
  - Decreased activity [Unknown]
  - Deep vein thrombosis [Unknown]
  - Pain in extremity [Unknown]

NARRATIVE: CASE EVENT DATE: 20150529
